FAERS Safety Report 6623521-X (Version None)
Quarter: 2010Q1

REPORT INFORMATION
  Report Type: 
  Country: None (occurrence: None)
  Receive Date: 20100224
  Receipt Date: 20100218
  Transmission Date: 20100710
  Serious: Yes (Hospitalization)
  Sender: FDA-Public Use
  Company Number: 2010021903

PATIENT
  Sex: Male
  Weight: 104.4 kg

DRUGS (7)
  1. VIVAGLOBIN [Suspect]
     Indication: IMMUNODEFICIENCY COMMON VARIABLE
     Dosage: (4.8 G, 4.8 G (0.16G/ML) OVER 1 HOUR SUBCUTANEOUS
     Route: 058
     Dates: start: 20091225
  2. COUMADIN [Concomitant]
  3. CYMBALTA [Concomitant]
  4. MOBIC [Concomitant]
  5. TOPROL-XL [Concomitant]
  6. FLOMAX (MORNIFLUMATE) [Concomitant]
  7. LUNESTA [Concomitant]

REACTIONS (1)
  - CONVULSION [None]
